FAERS Safety Report 9055699 (Version 12)
Quarter: 2014Q1

REPORT INFORMATION
  Report Type: Report from Study
  Country: US (occurrence: US)
  Receive Date: 20130206
  Receipt Date: 20140310
  Transmission Date: 20141002
  Serious: Yes (Hospitalization, Other)
  Sender: FDA-Public Use
  Company Number: US-BAXTER-2013BAX004605

PATIENT
  Age: 47 Year
  Sex: Female
  Weight: 83 kg

DRUGS (14)
  1. GAMMAGARD LIQUID [Suspect]
     Indication: IMMUNODEFICIENCY COMMON VARIABLE
     Route: 042
     Dates: start: 201212, end: 201305
  2. GAMMAGARD LIQUID [Suspect]
     Dosage: FROM A 350ML VIAL
     Route: 058
  3. GAMMAGARD LIQUID [Suspect]
     Route: 058
  4. GAMMAGARD LIQUID [Suspect]
     Route: 058
     Dates: start: 20130618
  5. HIZENTRA [Suspect]
     Indication: PRODUCT USED FOR UNKNOWN INDICATION
  6. PRAVASTATIN [Concomitant]
     Indication: BLOOD CHOLESTEROL INCREASED
     Route: 048
  7. XANAX [Concomitant]
     Indication: POST-TRAUMATIC STRESS DISORDER
     Route: 048
  8. PAXIL [Concomitant]
     Indication: POST-TRAUMATIC STRESS DISORDER
     Route: 048
  9. PAXIL [Concomitant]
     Indication: DEPRESSION
  10. METHOCARBAMOL [Concomitant]
     Indication: BACK DISORDER
     Route: 065
  11. METFORMIN [Concomitant]
     Indication: DIABETES MELLITUS
     Route: 048
  12. SYMBICORT [Concomitant]
     Indication: ASTHMA
     Route: 048
  13. NASONEX [Concomitant]
     Indication: CHRONIC SINUSITIS
     Route: 045
  14. NOVOLIN R [Concomitant]
     Indication: DIABETES MELLITUS

REACTIONS (15)
  - Bronchitis [Not Recovered/Not Resolved]
  - Condition aggravated [Recovering/Resolving]
  - Pleurisy [Recovering/Resolving]
  - Influenza [Recovering/Resolving]
  - Blood pressure increased [Recovering/Resolving]
  - Musculoskeletal chest pain [Recovering/Resolving]
  - Sinusitis [Not Recovered/Not Resolved]
  - Chest discomfort [Recovering/Resolving]
  - Hypersensitivity [Recovered/Resolved]
  - Pyrexia [Not Recovered/Not Resolved]
  - Asthenia [Unknown]
  - Cellulitis [Not Recovered/Not Resolved]
  - Arthralgia [Not Recovered/Not Resolved]
  - Pyrexia [Recovered/Resolved]
  - Malaise [Recovering/Resolving]
